FAERS Safety Report 7633347-6 (Version None)
Quarter: 2011Q3

REPORT INFORMATION
  Report Type: 
  Country: None (occurrence: None)
  Receive Date: 20110725
  Receipt Date: 20100830
  Transmission Date: 20111222
  Serious: No
  Sender: FDA-Public Use
  Company Number: US-BRISTOL-MYERS SQUIBB COMPANY-15260235

PATIENT
  Age: 62 Year
  Sex: Male

DRUGS (7)
  1. ZOMETA [Concomitant]
     Dates: start: 20050101
  2. LORTAB [Concomitant]
  3. CASODEX [Concomitant]
  4. VITAMIN B-12 [Concomitant]
  5. SPRYCEL [Suspect]
     Dates: start: 20100201, end: 20100701
  6. OXYCODONE HCL [Concomitant]
  7. COUMADIN [Concomitant]

REACTIONS (1)
  - BRAIN NATRIURETIC PEPTIDE INCREASED [None]
